FAERS Safety Report 11686721 (Version 28)
Quarter: 2018Q3

REPORT INFORMATION
  Report Type: Spontaneous
  Country: US (occurrence: US)
  Receive Date: 20151030
  Receipt Date: 20180815
  Transmission Date: 20181010
  Serious: No
  Sender: FDA-Public Use
  Company Number: US-PFIZER INC-2015369554

PATIENT
  Age: 62 Year
  Sex: Female
  Weight: 50 kg

DRUGS (33)
  1. PREMARIN [Interacting]
     Active Substance: ESTROGENS, CONJUGATED
     Indication: VULVOVAGINAL DISCOMFORT
     Dosage: 0.65 MG, 1X/DAY (APPLICATOR USES 0.5 APPLIED ONCE NIGHTLY)
  2. SYNTHROID [Interacting]
     Active Substance: LEVOTHYROXINE SODIUM
     Indication: HYPOTHYROIDISM
     Dosage: 100 UG 1X/DAY OR SIX TIMES A WEEK
     Route: 048
     Dates: start: 1983, end: 201602
  3. SYNTHROID [Interacting]
     Active Substance: LEVOTHYROXINE SODIUM
     Dosage: 0.88 UG, DAILY
     Route: 048
     Dates: start: 1980
  4. EVENING PRIMROSE OIL [Concomitant]
     Active Substance: EVENING PRIMROSE OIL\HERBALS
     Indication: ARTHRITIS
     Dosage: 1300 MG, 1X/DAY
     Dates: start: 2010
  5. EVENING PRIMROSE OIL [Concomitant]
     Active Substance: EVENING PRIMROSE OIL\HERBALS
     Indication: SUPPLEMENTATION THERAPY
     Dosage: 1300 MG, DAILY (SOFT GEL CAPSULE)
     Route: 048
     Dates: start: 201708
  6. KETOCONAZOLE. [Concomitant]
     Active Substance: KETOCONAZOLE
     Indication: RASH
     Dosage: 2 %, AS NEEDED
     Route: 061
     Dates: start: 2009
  7. PREMARIN [Suspect]
     Active Substance: ESTROGENS, CONJUGATED
     Indication: ARTIFICIAL MENOPAUSE
     Dosage: 1.25 MG, 1X/DAY
     Route: 048
     Dates: start: 1983
  8. PREMARIN [Interacting]
     Active Substance: ESTROGENS, CONJUGATED
     Dosage: 0.625 MG, 2X/DAY
     Route: 048
     Dates: start: 201602
  9. PREMARIN [Interacting]
     Active Substance: ESTROGENS, CONJUGATED
     Dosage: 1.25 MG, DAILY
     Route: 048
  10. PREMARIN [Interacting]
     Active Substance: ESTROGENS, CONJUGATED
     Indication: ARTIFICIAL MENOPAUSE
     Dosage: 0.5 MG, DAILY (INSERT WITH APPLICATOR VAGINALLY, ON THE LINE EVERY DAY)
     Route: 067
     Dates: start: 2008
  11. PREMARIN [Interacting]
     Active Substance: ESTROGENS, CONJUGATED
     Dosage: UNK
     Dates: start: 201701
  12. CLONAZEPAM. [Concomitant]
     Active Substance: CLONAZEPAM
     Indication: MUSCLE SPASMS
     Dosage: 1 MG, 1X/DAY
  13. BABY ASPIRIN [Concomitant]
     Active Substance: ASPIRIN
     Dosage: 81 MG, 1X/DAY
  14. PREMARIN [Interacting]
     Active Substance: ESTROGENS, CONJUGATED
     Dosage: 1.25 MG, 1X/DAY (0.625 MG TABLET, 2 TABLET)
     Route: 048
  15. SYNTHROID [Interacting]
     Active Substance: LEVOTHYROXINE SODIUM
     Dosage: 88 UG, DAILY
  16. LANSOPRAZOLE. [Concomitant]
     Active Substance: LANSOPRAZOLE
     Indication: GASTROOESOPHAGEAL REFLUX DISEASE
     Dosage: 30 MG, DAILY
     Route: 048
     Dates: start: 201708
  17. PREMARIN [Interacting]
     Active Substance: ESTROGENS, CONJUGATED
     Indication: VULVOVAGINAL PAIN
     Dosage: 0.625 MG, 1X/DAY (1 APPLICATOR A DAY 0.5)
  18. FLUTICASONE PROPIONATE. [Concomitant]
     Active Substance: FLUTICASONE PROPIONATE
     Indication: HYPERSENSITIVITY
     Dosage: 50 UG, AS NEEDED [2 SPRAYS A DAY]
     Dates: start: 2016
  19. PREMARIN [Interacting]
     Active Substance: ESTROGENS, CONJUGATED
     Dosage: 0.625 MG, 1X/DAY
     Route: 048
  20. PREMARIN [Interacting]
     Active Substance: ESTROGENS, CONJUGATED
     Dosage: 1.25 MG,  (0.625 MG TABLET, 2 TABLET)
     Route: 048
  21. SYNTHROID [Interacting]
     Active Substance: LEVOTHYROXINE SODIUM
     Indication: HORMONE REPLACEMENT THERAPY
     Dosage: 75 UG, DAILY
     Route: 048
     Dates: start: 201602
  22. VOLTAREN [Concomitant]
     Active Substance: DICLOFENAC SODIUM
     Indication: ARTHRITIS
     Dosage: 2 MG (1 + 3/4 INCH STRIP), AS NEEDED
     Route: 061
     Dates: start: 2007
  23. NAPROXEN SODIUM. [Concomitant]
     Active Substance: NAPROXEN SODIUM
     Indication: ARTHRITIS
     Dosage: UNK, AS NEEDED
     Dates: start: 2007
  24. MOMETASONE FUROATE. [Concomitant]
     Active Substance: MOMETASONE FUROATE
     Indication: RASH
     Dosage: 0.1 %, AS NEEDED
  25. PREMARIN [Interacting]
     Active Substance: ESTROGENS, CONJUGATED
     Indication: VULVOVAGINAL DRYNESS
     Dosage: 0.625 MG, 1X/DAY (ONCE AT BED TIME)
     Dates: start: 2008
  26. PREMARIN [Interacting]
     Active Substance: ESTROGENS, CONJUGATED
     Indication: MENOPAUSE
     Dosage: UNK
  27. SYNTHROID [Interacting]
     Active Substance: LEVOTHYROXINE SODIUM
     Dosage: 88 UG, DAILY
     Route: 048
  28. CLONAZEPAM. [Concomitant]
     Active Substance: CLONAZEPAM
     Dosage: 0.5 MG, DAILY (1MG TABLET, TAKES 1/2 TABLET A DAY BY MOUTH)
     Route: 048
  29. CLONAZEPAM. [Concomitant]
     Active Substance: CLONAZEPAM
     Dosage: 1/2 TO 1 TABLET NIGHTLY, AS NEEDED
  30. CLONAZEPAM. [Concomitant]
     Active Substance: CLONAZEPAM
     Dosage: UNK, DAILY (TAKES 1/2 TABLET A DAY BY MOUTH)
     Route: 048
  31. ASPIRIN. [Concomitant]
     Active Substance: ASPIRIN
     Indication: CEREBROVASCULAR ACCIDENT PROPHYLAXIS
     Dosage: 81 MG, DAILY
     Route: 048
     Dates: start: 1985
  32. ASPIRIN. [Concomitant]
     Active Substance: ASPIRIN
     Dosage: 81 MG, DAILY
     Route: 048
  33. TRIAMCINOLONE ACETONIDE. [Concomitant]
     Active Substance: TRIAMCINOLONE ACETONIDE
     Indication: RASH
     Dosage: 0.1 %, AS NEEDED

REACTIONS (25)
  - Vulvovaginal burning sensation [Not Recovered/Not Resolved]
  - Drug dose omission [Unknown]
  - Alopecia [Unknown]
  - Malaise [Unknown]
  - Feeling abnormal [Unknown]
  - Migraine [Not Recovered/Not Resolved]
  - Pain [Unknown]
  - Product use issue [Unknown]
  - Confusional state [Unknown]
  - Expired product administered [Unknown]
  - Amnesia [Unknown]
  - Dry skin [Unknown]
  - Drug interaction [Unknown]
  - Malabsorption [Unknown]
  - Circadian rhythm sleep disorder [Not Recovered/Not Resolved]
  - Insomnia [Unknown]
  - Vulval disorder [Unknown]
  - Drug ineffective [Unknown]
  - Weight fluctuation [Unknown]
  - Product quality issue [Unknown]
  - Sleep disorder [Not Recovered/Not Resolved]
  - Pollakiuria [Unknown]
  - Hormone level abnormal [Unknown]
  - Mood swings [Unknown]
  - Condition aggravated [Unknown]

NARRATIVE: CASE EVENT DATE: 201701
